FAERS Safety Report 10867032 (Version 1)
Quarter: 2015Q1

REPORT INFORMATION
  Report Type: Spontaneous
  Country: US (occurrence: US)
  Receive Date: 20150225
  Receipt Date: 20150225
  Transmission Date: 20150721
  Serious: No
  Sender: FDA-Public Use
  Company Number: US-PFIZER INC-2015067007

PATIENT
  Age: 47 Year
  Sex: Female

DRUGS (6)
  1. PROPRANOLOL [Suspect]
     Active Substance: PROPRANOLOL\PROPRANOLOL HYDROCHLORIDE
     Indication: PALPITATIONS
  2. PROPRANOLOL [Suspect]
     Active Substance: PROPRANOLOL\PROPRANOLOL HYDROCHLORIDE
     Indication: CARDIAC DISORDER
     Dosage: UNK
  3. METHIMAZOLE. [Suspect]
     Active Substance: METHIMAZOLE
     Indication: HEART RATE INCREASED
  4. METHIMAZOLE. [Suspect]
     Active Substance: METHIMAZOLE
     Indication: CARDIAC DISORDER
     Dosage: UNK
  5. PROPRANOLOL [Suspect]
     Active Substance: PROPRANOLOL\PROPRANOLOL HYDROCHLORIDE
     Indication: HEART RATE INCREASED
  6. METHIMAZOLE. [Suspect]
     Active Substance: METHIMAZOLE
     Indication: PALPITATIONS

REACTIONS (2)
  - Product use issue [Unknown]
  - Drug ineffective [Not Recovered/Not Resolved]
